FAERS Safety Report 12012846 (Version 3)
Quarter: 2017Q1

REPORT INFORMATION
  Report Type: Spontaneous
  Country: JP (occurrence: JP)
  Receive Date: 20160205
  Receipt Date: 20170124
  Transmission Date: 20170428
  Serious: Yes (Other)
  Sender: FDA-Public Use
  Company Number: JP-MALLINCKRODT-T201403718

PATIENT
  Age: 64 Year
  Sex: Male
  Weight: 50 kg

DRUGS (23)
  1. OPSO [Concomitant]
     Active Substance: MORPHINE HYDROCHLORIDE
     Dosage: 10 MG, PRN
     Route: 048
     Dates: start: 20140203, end: 20140206
  2. SELBEX [Concomitant]
     Active Substance: TEPRENONE
     Dosage: 150 MG
     Route: 048
     Dates: end: 20140402
  3. GLYCERIN W/FRUCTOSE [Concomitant]
     Indication: NASAL SINUS CANCER
     Dosage: 200 ML
     Route: 051
     Dates: end: 20140207
  4. LOXONIN [Concomitant]
     Active Substance: LOXOPROFEN SODIUM
     Dosage: 180 MG
     Route: 048
     Dates: end: 20140402
  5. SERENACE [Concomitant]
     Active Substance: HALOPERIDOL
     Indication: DELIRIUM
     Dosage: 5 MG
     Route: 051
     Dates: start: 20140206, end: 20140209
  6. ROCEPHIN [Concomitant]
     Active Substance: CEFTRIAXONE SODIUM
     Indication: CELLULITIS ORBITAL
     Dosage: 2000 MG
     Route: 051
     Dates: start: 20140219, end: 20140223
  7. ROCEPHIN [Concomitant]
     Active Substance: CEFTRIAXONE SODIUM
     Dosage: UNK
     Dates: start: 20140206
  8. SILECE [Concomitant]
     Active Substance: FLUNITRAZEPAM
     Indication: DELIRIUM
     Dosage: 2 MG
     Route: 051
     Dates: start: 20140206, end: 20140209
  9. METHADONE [Suspect]
     Active Substance: METHADONE HYDROCHLORIDE
     Dosage: 10 MG, (20 MG DAILY DOSE)
     Route: 048
     Dates: start: 20140211, end: 20140331
  10. NAUZELIN [Concomitant]
     Active Substance: DOMPERIDONE
     Dosage: 30 MG
     Route: 048
     Dates: end: 20140408
  11. LYRICA [Concomitant]
     Active Substance: PREGABALIN
     Dosage: 150 MG
     Route: 048
     Dates: start: 20140204, end: 20140207
  12. GLYCERIN W/FRUCTOSE [Concomitant]
     Dosage: 200 ML
     Route: 051
     Dates: start: 20140223, end: 20140228
  13. METHADONE [Suspect]
     Active Substance: METHADONE HYDROCHLORIDE
     Indication: CANCER PAIN
     Dosage: 5 MG, (15 MG DAILY DOSE)
     Route: 048
     Dates: start: 20140204, end: 20140210
  14. DECADRON [Concomitant]
     Active Substance: DEXAMETHASONE
     Indication: NASAL SINUS CANCER
     Dosage: 6.6 MG
     Route: 051
     Dates: end: 20140207
  15. CHLORTRIMETON [Concomitant]
     Active Substance: CHLORPHENIRAMINE MALEATE
     Indication: NASAL SINUS CANCER
     Dosage: 10 MG
     Route: 051
     Dates: start: 20140226, end: 20140226
  16. ERBITUX [Concomitant]
     Active Substance: CETUXIMAB
     Dosage: 375 MG
     Route: 051
     Dates: start: 20140219, end: 20140401
  17. FERROMIA [Concomitant]
     Active Substance: FERROUS CITRATE
     Dosage: 100 MG
     Route: 048
     Dates: end: 20140325
  18. METHADONE [Suspect]
     Active Substance: METHADONE HYDROCHLORIDE
     Dosage: 10 MG (30 MG DAILY DOSE)
     Route: 048
     Dates: start: 20140401, end: 20140425
  19. MAGNESIUM OXIDE. [Concomitant]
     Active Substance: MAGNESIUM OXIDE
     Dosage: 1500 MG
     Route: 048
     Dates: end: 20140408
  20. PANTOSIN [Concomitant]
     Active Substance: PANTETHINE
     Dosage: 1500 MG
     Route: 048
     Dates: end: 20140408
  21. TRAVELMIN [Concomitant]
     Active Substance: DIMENHYDRINATE
     Dosage: 3 DF
     Route: 048
     Dates: start: 20140204, end: 20140204
  22. DECADRON [Concomitant]
     Active Substance: DEXAMETHASONE
     Dosage: 6.6 MG
     Route: 051
     Dates: start: 20140223, end: 20140228
  23. FENTOS [Concomitant]
     Active Substance: FENTANYL
     Dosage: 6 MG
     Route: 062
     Dates: end: 20140207

REACTIONS (4)
  - Dyspnoea [Recovered/Resolved]
  - Delirium [Recovering/Resolving]
  - Cellulitis orbital [Recovering/Resolving]
  - Somnolence [Not Recovered/Not Resolved]

NARRATIVE: CASE EVENT DATE: 20140206
